FAERS Safety Report 19847529 (Version 1)
Quarter: 2021Q3

REPORT INFORMATION
  Report Type: Spontaneous
  Country: BR (occurrence: BR)
  Receive Date: 20210917
  Receipt Date: 20210917
  Transmission Date: 20211014
  Serious: Yes (Hospitalization, Other)
  Sender: FDA-Public Use
  Company Number: BR-PFIZER INC-202101188604

PATIENT
  Age: 73 Year
  Sex: Male
  Weight: 65 kg

DRUGS (2)
  1. FRONTAL [Suspect]
     Active Substance: ALPRAZOLAM
     Indication: ANXIETY DISORDER
     Dosage: 0.5 MG, 1X/DAY (NIGHT PERIOD)
     Dates: start: 20210607
  2. FRONTAL [Suspect]
     Active Substance: ALPRAZOLAM
     Dosage: 2 MG
     Dates: end: 20210609

REACTIONS (8)
  - Somnolence [Recovered/Resolved]
  - Hypotension [Unknown]
  - Hypothermia [Recovered/Resolved]
  - Swelling [Unknown]
  - Hyperkalaemia [Recovered/Resolved]
  - Depressed level of consciousness [Recovered/Resolved]
  - Loss of consciousness [Recovered/Resolved]
  - Heart rate decreased [Unknown]

NARRATIVE: CASE EVENT DATE: 20210610
